FAERS Safety Report 13920334 (Version 2)
Quarter: 2017Q3

REPORT INFORMATION
  Report Type: Spontaneous
  Country: US (occurrence: US)
  Receive Date: 20170830
  Receipt Date: 20170928
  Transmission Date: 20171127
  Serious: Yes (Other)
  Sender: FDA-Public Use
  Company Number: US-SUN PHARMACEUTICAL INDUSTRIES LTD-2017US-148753

PATIENT
  Age: 11 Year
  Sex: Male

DRUGS (1)
  1. DOCETAXEL. [Suspect]
     Active Substance: DOCETAXEL
     Indication: HEPATOBLASTOMA
     Dosage: 100 MG/M/DOSE IV EVERY 21 DAYS
     Route: 042

REACTIONS (2)
  - Disease progression [Recovered/Resolved]
  - Alpha 1 foetoprotein increased [Recovering/Resolving]
